FAERS Safety Report 16777117 (Version 1)
Quarter: 2019Q3

REPORT INFORMATION
  Report Type: Spontaneous
  Country: US (occurrence: US)
  Receive Date: 20190905
  Receipt Date: 20190905
  Transmission Date: 20191005
  Serious: Yes (Other)
  Sender: FDA-Public Use
  Company Number: US-JNJFOC-20190904335

PATIENT
  Age: 22 Year
  Sex: Male
  Weight: 96.25 kg

DRUGS (1)
  1. RISPERDAL [Suspect]
     Active Substance: RISPERIDONE
     Indication: PSYCHIATRIC SYMPTOM
     Dosage: 0.25 TO 4 MG PER DAY
     Route: 048
     Dates: start: 20051017, end: 20101122

REACTIONS (1)
  - Breast enlargement [Unknown]

NARRATIVE: CASE EVENT DATE: 20171117
